FAERS Safety Report 24617042 (Version 4)
Quarter: 2025Q1

REPORT INFORMATION
  Report Type: Report from Study
  Country: US (occurrence: US)
  Receive Date: 20241114
  Receipt Date: 20250117
  Transmission Date: 20250409
  Serious: Yes (Other)
  Sender: ABBVIE
  Company Number: US-ABBVIE-6000013

PATIENT
  Age: 58 Year
  Sex: Female
  Weight: 79 kg

DRUGS (7)
  1. HUMIRA [Suspect]
     Active Substance: ADALIMUMAB
     Indication: Rheumatoid arthritis
     Route: 058
     Dates: start: 20231205
  2. HUMIRA [Suspect]
     Active Substance: ADALIMUMAB
     Route: 058
     Dates: start: 20170710, end: 20231024
  3. LEFLUNOMIDE [Concomitant]
     Active Substance: LEFLUNOMIDE
     Indication: Rheumatoid arthritis
  4. LEFLUNOMIDE [Concomitant]
     Active Substance: LEFLUNOMIDE
     Indication: Rheumatoid arthritis
  5. MELOXICAM [Concomitant]
     Active Substance: MELOXICAM
     Indication: Product used for unknown indication
  6. ATORVASTATIN [Concomitant]
     Active Substance: ATORVASTATIN
     Indication: Product used for unknown indication
  7. LOSARTAN [Concomitant]
     Active Substance: LOSARTAN
     Indication: Product used for unknown indication

REACTIONS (8)
  - Intervertebral disc protrusion [Unknown]
  - Intervertebral disc degeneration [Not Recovered/Not Resolved]
  - Pain in extremity [Recovered/Resolved]
  - Back injury [Unknown]
  - Spinal disorder [Recovered/Resolved]
  - Arthralgia [Recovered/Resolved]
  - Spinal stenosis [Not Recovered/Not Resolved]
  - Spinal decompression [Unknown]

NARRATIVE: CASE EVENT DATE: 20200101
